FAERS Safety Report 6016218-0 (Version None)
Quarter: 2008Q4

REPORT INFORMATION
  Report Type: 
  Country: None (occurrence: None)
  Receive Date: 20081222
  Receipt Date: 20081209
  Transmission Date: 20090506
  Serious: Yes (Other)
  Sender: FDA-Public Use
  Company Number: JP-PFIZER INC-2008073502

PATIENT
  Age: 75 Year
  Sex: Male

DRUGS (4)
  1. VFEND [Suspect]
     Indication: SCEDOSPORIUM INFECTION
     Dosage: 420 MG, 2X/DAY
     Route: 042
     Dates: start: 20080623, end: 20080625
  2. VFEND [Suspect]
     Dosage: 140 MG, 2X/DAY
     Dates: start: 20080625, end: 20080709
  3. VFEND [Suspect]
     Dosage: 50 MG, 1X/DAY
     Route: 048
     Dates: start: 20080610
  4. VFEND [Suspect]
     Dosage: 200 MG, 2X/DAY
     Route: 048

REACTIONS (2)
  - LIVER FUNCTION TEST ABNORMAL [None]
  - SCEDOSPORIUM INFECTION [None]
